FAERS Safety Report 24804864 (Version 1)
Quarter: 2025Q1

REPORT INFORMATION
  Report Type: Spontaneous
  Country: US (occurrence: US)
  Receive Date: 20250103
  Receipt Date: 20250103
  Transmission Date: 20250409
  Serious: Yes (Life-Threatening, Hospitalization)
  Sender: MYLAN
  Company Number: US-MYLANLABS-2025M1000637

PATIENT
  Age: 63 Year
  Sex: Male

DRUGS (3)
  1. FAMOTIDINE [Suspect]
     Active Substance: FAMOTIDINE
     Indication: Dysphagia
     Route: 065
  2. ATORVASTATIN [Suspect]
     Active Substance: ATORVASTATIN
     Indication: Product used for unknown indication
     Route: 065
  3. BACTRIM [Concomitant]
     Active Substance: SULFAMETHOXAZOLE\TRIMETHOPRIM
     Indication: Cellulitis
     Route: 065

REACTIONS (6)
  - Autoimmune disorder [Recovering/Resolving]
  - Necrotising myositis [Recovering/Resolving]
  - Drug ineffective [Unknown]
  - Rhabdomyolysis [Recovering/Resolving]
  - Dysphagia [Recovering/Resolving]
  - Generalised oedema [Recovering/Resolving]
